FAERS Safety Report 6553774-8 (Version None)
Quarter: 2010Q1

REPORT INFORMATION
  Report Type: 
  Country: None (occurrence: None)
  Receive Date: 20100127
  Receipt Date: 20100120
  Transmission Date: 20100710
  Serious: Yes (Disabling, Other)
  Sender: FDA-Public Use
  Company Number: GB-BRISTOL-MYERS SQUIBB COMPANY-14910772

PATIENT
  Age: 46 Year
  Sex: Male

DRUGS (1)
  1. ABILIFY [Suspect]
     Dosage: 01MAR09-14DEC09(20MG) 15DEC09-PRESENT(15MG)
     Dates: start: 20090301

REACTIONS (3)
  - MEDICATION ERROR [None]
  - SEXUAL DYSFUNCTION [None]
  - WEIGHT INCREASED [None]
